FAERS Safety Report 8914406 (Version 3)
Quarter: 2012Q4

REPORT INFORMATION
  Report Type: 
  Country: FR (occurrence: FR)
  Receive Date: 20121119
  Receipt Date: 20121214
  Transmission Date: 20130627
  Serious: Yes (Hospitalization)
  Sender: FDA-Public Use
  Company Number: FR-ABBOTT-12P-056-1009071-00

PATIENT
  Age: 23 Year
  Sex: Female

DRUGS (7)
  1. DEPAKINE CHRONO [Suspect]
     Indication: EPILEPSY
     Dosage: Extended release
     Route: 048
     Dates: start: 20120915, end: 20120915
  2. FURADANTINE [Suspect]
     Indication: URINARY TRACT INFECTION
     Route: 048
     Dates: start: 20120917, end: 20120919
  3. DEPAKINE [Suspect]
     Indication: EPILEPSY
     Dates: start: 20120915, end: 20120915
  4. INEXIUM (ESOMEPRAZOLE) [Concomitant]
     Indication: PRODUCT USED FOR UNKNOWN INDICATION
  5. SPASFON [Concomitant]
     Indication: PRODUCT USED FOR UNKNOWN INDICATION
     Dates: start: 20120918
  6. PLACEBO [Concomitant]
     Indication: PRODUCT USED FOR UNKNOWN INDICATION
  7. EPITOMAX [Concomitant]
     Indication: PRODUCT USED FOR UNKNOWN INDICATION
     Dates: start: 2010

REACTIONS (1)
  - Urticaria [Recovered/Resolved]
